FAERS Safety Report 7929741-6 (Version None)
Quarter: 2011Q4

REPORT INFORMATION
  Report Type: 
  Country: None (occurrence: None)
  Receive Date: 20111121
  Receipt Date: 20111115
  Transmission Date: 20120403
  Serious: No
  Sender: FDA-Public Use
  Company Number: PHHY2011CA70399

PATIENT
  Sex: Female

DRUGS (1)
  1. ZOLEDRONOC ACID [Suspect]
     Indication: OSTEOPOROSIS
     Route: 042
     Dates: start: 20101021

REACTIONS (7)
  - INFLUENZA LIKE ILLNESS [None]
  - MUSCULOSKELETAL DISORDER [None]
  - PAIN [None]
  - DRUG INEFFECTIVE [None]
  - BACK PAIN [None]
  - MALAISE [None]
  - SPINAL X-RAY ABNORMAL [None]
